FAERS Safety Report 21903175 (Version 1)
Quarter: 2023Q1

REPORT INFORMATION
  Report Type: Other
  Country: GB (occurrence: GB)
  Receive Date: 20230124
  Receipt Date: 20230124
  Transmission Date: 20230417
  Serious: Yes (Other)
  Sender: FDA-Public Use
  Company Number: GB-MACLEODS PHARMA EU LTD-MAC2023039351

PATIENT

DRUGS (3)
  1. TAMSULOSIN [Suspect]
     Active Substance: TAMSULOSIN
     Indication: Ill-defined disorder
     Dosage: 1 DOSAGE FORM, QD (TAKE ONE DAILY)
     Route: 065
     Dates: start: 20220513, end: 20221212
  2. TAMSULOSIN [Suspect]
     Active Substance: TAMSULOSIN
     Dosage: UNK
     Route: 065
     Dates: start: 20221208
  3. MIRABEGRON [Concomitant]
     Active Substance: MIRABEGRON
     Indication: Ill-defined disorder
     Dosage: 1 DOSAGE FORM, QD
     Route: 065
     Dates: start: 20221208

REACTIONS (1)
  - Erectile dysfunction [Recovered/Resolved]

NARRATIVE: CASE EVENT DATE: 20221231
